FAERS Safety Report 9915075 (Version 2)
Quarter: 2014Q1

REPORT INFORMATION
  Report Type: Report from Study
  Country: NZ (occurrence: NZ)
  Receive Date: 20140220
  Receipt Date: 20140220
  Transmission Date: 20141002
  Serious: Yes (Other)
  Sender: FDA-Public Use
  Company Number: PHHY2013NZ074443

PATIENT
  Sex: Female

DRUGS (2)
  1. CLOZARIL [Suspect]
     Dosage: UNK
     Dates: start: 20130701
  2. CLOZARIL [Suspect]
     Dosage: UNK
     Dates: start: 20140210

REACTIONS (4)
  - Choking [Unknown]
  - Salivary hypersecretion [Unknown]
  - Hyperventilation [Unknown]
  - Frustration [Unknown]
